FAERS Safety Report 19291657 (Version 1)
Quarter: 2021Q2

REPORT INFORMATION
  Report Type: Spontaneous
  Country: AR (occurrence: AR)
  Receive Date: 20210523
  Receipt Date: 20210523
  Transmission Date: 20210717
  Serious: Yes (Other)
  Sender: FDA-Public Use
  Company Number: AR-SA-2021SA168648

PATIENT
  Age: 42 Year
  Sex: Male
  Weight: 92 kg

DRUGS (1)
  1. ALEMTUZUMAB [Suspect]
     Active Substance: ALEMTUZUMAB
     Indication: MULTIPLE SCLEROSIS
     Dosage: DOSE/ FREQUENCY: CYCLE X 2 ROUTE OF ADMINISTRATION: ENDOVENOUS
     Route: 042
     Dates: start: 20190410, end: 20190414

REACTIONS (1)
  - Chronic lymphocytic leukaemia [Not Recovered/Not Resolved]

NARRATIVE: CASE EVENT DATE: 202009
